FAERS Safety Report 8366571-8 (Version None)
Quarter: 2012Q1

REPORT INFORMATION
  Report Type: 
  Country: None (occurrence: None)
  Receive Date: 20120323
  Receipt Date: 20110408
  Transmission Date: 20120608
  Serious: Yes (Disabling)
  Sender: FDA-Public Use
  Company Number: 163-21880-11041163

PATIENT
  Age: 83 Year
  Sex: Female

DRUGS (4)
  1. CITRACEL(CALCIUM CITRATE)(UNKNOWN) [Concomitant]
  2. BENICAR(OLMESARTAN MEDOXOMIL)(UNKNOWN) [Concomitant]
  3. REVLIMID [Suspect]
     Indication: MULTIPLE MYELOMA
     Dosage: 5 MG, 1 IN 1 D, PO
     Route: 048
     Dates: start: 20110330
  4. NASONEX(MOMETASONE FUROATE)(UNKNOWN) [Concomitant]

REACTIONS (2)
  - URTICARIA [None]
  - BRONCHITIS [None]
